FAERS Safety Report 7129494-8 (Version None)
Quarter: 2010Q4

REPORT INFORMATION
  Report Type: 
  Country: None (occurrence: None)
  Receive Date: 20101116
  Receipt Date: 20101103
  Transmission Date: 20110411
  Serious: Yes (Hospitalization)
  Sender: FDA-Public Use
  Company Number: 021486

PATIENT
  Sex: Female
  Weight: 50 kg

DRUGS (4)
  1. CIMZIA [Suspect]
     Indication: CROHN'S DISEASE
     Dosage: (400 MG 1X/2 WEEKS, NBR OF DOSES: 3 SUBCUTANEOUS) (400 MG 1X/4 WEEKS, NBR OF DOSES: 71 SUBCUTANEOUS)
     Route: 058
     Dates: start: 20041029
  2. PREDNISONE [Concomitant]
  3. AZAPRESS [Concomitant]
  4. IRON [Concomitant]

REACTIONS (3)
  - ANAL FISTULA INFECTION [None]
  - HAEMOGLOBIN DECREASED [None]
  - ILEITIS [None]
